FAERS Safety Report 23487528 (Version 3)
Quarter: 2024Q4

REPORT INFORMATION
  Report Type: Spontaneous
  Country: CA (occurrence: CA)
  Receive Date: 20240206
  Receipt Date: 20241220
  Transmission Date: 20250115
  Serious: Yes (Hospitalization, Other)
  Sender: MYLAN
  Company Number: CA-MYLANLABS-2024M1011164

PATIENT
  Age: 47 Year
  Sex: Female

DRUGS (88)
  1. GABAPENTIN [Interacting]
     Active Substance: GABAPENTIN
     Indication: Scoliosis
     Dosage: 600 MILLIGRAM, TID (3 EVERY 1 DAYS)
     Route: 048
  2. GABAPENTIN [Interacting]
     Active Substance: GABAPENTIN
     Indication: Pain
     Dosage: 600 MILLIGRAM, QID (4 EVERY 1 DAYS)
     Route: 048
  3. GABAPENTIN [Interacting]
     Active Substance: GABAPENTIN
     Dosage: 400 MILLIGRAM, QID (4 EVERY 1 DAYS)
     Route: 048
  4. GABAPENTIN [Interacting]
     Active Substance: GABAPENTIN
     Dosage: 400 MILLIGRAM, QID (4 EVERY 1 DAYS)
     Route: 065
  5. GABAPENTIN [Interacting]
     Active Substance: GABAPENTIN
     Dosage: UNK
     Route: 065
  6. GABAPENTIN [Interacting]
     Active Substance: GABAPENTIN
     Dosage: 600 MILLIGRAM, TID (3 EVERY 1 DAYS)
     Route: 048
  7. VALPROATE [Interacting]
     Active Substance: VALPROIC ACID
     Indication: Mania
     Dosage: UNK
     Route: 048
  8. VALPROATE [Interacting]
     Active Substance: VALPROIC ACID
     Indication: Affective disorder
     Dosage: 250 MILLIGRAM, QD (1 EVERY 1 DAYS)
     Route: 048
  9. VALPROATE [Interacting]
     Active Substance: VALPROIC ACID
     Dosage: 500 MILLIGRAM, QD (1 EVERY 1 DAYS)
     Route: 048
  10. VALPROATE [Interacting]
     Active Substance: VALPROIC ACID
     Dosage: 250 MILLIGRAM
     Route: 048
  11. VALPROATE [Interacting]
     Active Substance: VALPROIC ACID
     Dosage: 500 MILLIGRAM
     Route: 048
  12. VALPROATE [Interacting]
     Active Substance: VALPROIC ACID
     Dosage: 750 MILLIGRAM, QD
     Route: 048
  13. DIVALPROEX SODIUM [Interacting]
     Active Substance: DIVALPROEX SODIUM
     Indication: Affective disorder
     Dosage: 250 MILLIGRAM, QD
     Route: 048
  14. DIVALPROEX SODIUM [Interacting]
     Active Substance: DIVALPROEX SODIUM
     Indication: Mania
     Dosage: 750 MILLIGRAM, QD
     Route: 048
  15. DIVALPROEX SODIUM [Interacting]
     Active Substance: DIVALPROEX SODIUM
     Dosage: 500 MILLIGRAM, QD (1 EVERY 1 DAYS)
     Route: 048
  16. CYCLOBENZAPRINE [Interacting]
     Active Substance: CYCLOBENZAPRINE
     Indication: Scoliosis
     Dosage: 10 MILLIGRAM
     Route: 048
  17. CYCLOBENZAPRINE [Interacting]
     Active Substance: CYCLOBENZAPRINE
     Indication: Pain
     Dosage: 10 MILLIGRAM, TID (3 EVERY 1 DAYS)
     Route: 048
  18. CYCLOBENZAPRINE [Interacting]
     Active Substance: CYCLOBENZAPRINE
     Dosage: 10 MILLIGRAM, BID ( 2 EVERY 1 DAYS)
     Route: 048
  19. CYCLOBENZAPRINE [Interacting]
     Active Substance: CYCLOBENZAPRINE
     Dosage: 50 MILLIGRAM, BID
     Route: 048
  20. CYCLOBENZAPRINE [Interacting]
     Active Substance: CYCLOBENZAPRINE
     Dosage: 10 MILLIGRAM, BID ( 2 EVERY 1 DAYS)
     Route: 048
  21. FLUOXETINE HYDROCHLORIDE [Interacting]
     Active Substance: FLUOXETINE HYDROCHLORIDE
     Indication: Major depression
     Dosage: 80 MILLIGRAM
     Route: 048
  22. FLUOXETINE HYDROCHLORIDE [Interacting]
     Active Substance: FLUOXETINE HYDROCHLORIDE
     Dosage: 60 MILLIGRAM, QD (1 EVERY 1 DAYS)
     Route: 048
  23. FLUOXETINE HYDROCHLORIDE [Interacting]
     Active Substance: FLUOXETINE HYDROCHLORIDE
     Dosage: 40 MILLIGRAM, QD (1 EVERY 1 DAYS)
     Route: 048
  24. FLUOXETINE HYDROCHLORIDE [Interacting]
     Active Substance: FLUOXETINE HYDROCHLORIDE
     Dosage: UNK
     Route: 048
  25. FLUOXETINE HYDROCHLORIDE [Interacting]
     Active Substance: FLUOXETINE HYDROCHLORIDE
     Dosage: 20 MILLIGRAM, QD (1 EVERY 1 DAYS
     Route: 048
  26. FLUOXETINE HYDROCHLORIDE [Interacting]
     Active Substance: FLUOXETINE HYDROCHLORIDE
     Dosage: 80 MILLIGRAM, QD (1 EVERY 1 DAY)
     Route: 048
  27. FLUOXETINE HYDROCHLORIDE [Interacting]
     Active Substance: FLUOXETINE HYDROCHLORIDE
     Dosage: 20 MILLIGRAM
     Route: 048
  28. FLUOXETINE HYDROCHLORIDE [Interacting]
     Active Substance: FLUOXETINE HYDROCHLORIDE
     Dosage: 80 MILLIGRAM, QD
     Route: 065
  29. DEPAKOTE [Interacting]
     Active Substance: DIVALPROEX SODIUM
     Indication: Mania
     Dosage: 750 MILLIGRAM, QD (1 EVERY 1 DAYS)
     Route: 048
  30. DEPAKOTE [Interacting]
     Active Substance: DIVALPROEX SODIUM
     Indication: Affective disorder
     Dosage: 250 MILLIGRAM, QD (1 EVERY 1 DAYS)
     Route: 048
  31. DEPAKOTE [Interacting]
     Active Substance: DIVALPROEX SODIUM
     Dosage: 500 MILLIGRAM, QD (1 EVERY 1 DAYS)
     Route: 048
  32. LORAZEPAM [Interacting]
     Active Substance: LORAZEPAM
     Indication: Withdrawal syndrome
     Dosage: UNK, QD (1 EVERY 24 HOURS)
     Route: 048
  33. LORAZEPAM [Interacting]
     Active Substance: LORAZEPAM
     Indication: Anxiety
     Dosage: 2 MILLIGRAM, QID
     Route: 048
  34. LORAZEPAM [Interacting]
     Active Substance: LORAZEPAM
     Indication: Drug withdrawal syndrome
     Dosage: 3 MILLIGRAM
     Route: 048
  35. LORAZEPAM [Interacting]
     Active Substance: LORAZEPAM
     Indication: Affective disorder
     Dosage: 4 MILLIGRAM
     Route: 048
  36. LORAZEPAM [Interacting]
     Active Substance: LORAZEPAM
     Dosage: UNK  (4 EVERY 1 DAYS)
     Route: 048
  37. LORAZEPAM [Interacting]
     Active Substance: LORAZEPAM
     Dosage: 2 MILLIGRAM
     Route: 065
  38. LORAZEPAM [Interacting]
     Active Substance: LORAZEPAM
     Dosage: 7 MILLIGRAM
     Route: 048
  39. LORAZEPAM [Interacting]
     Active Substance: LORAZEPAM
     Dosage: 1 MILLIGRAM
     Route: 048
  40. LORAZEPAM [Interacting]
     Active Substance: LORAZEPAM
     Dosage: 1 MILLIGRAM
     Route: 030
  41. LORAZEPAM [Interacting]
     Active Substance: LORAZEPAM
     Dosage: 6 MILLIGRAM
     Route: 048
  42. LORAZEPAM [Interacting]
     Active Substance: LORAZEPAM
     Dosage: 5 MILLIGRAM
     Route: 048
  43. LORAZEPAM [Interacting]
     Active Substance: LORAZEPAM
     Dosage: 1 MILLIGRAM (TOTAL)
     Route: 048
  44. LORAZEPAM [Interacting]
     Active Substance: LORAZEPAM
     Dosage: 1 MILLIGRAM, QD (1 EVERY 24 HOURS)
     Route: 030
  45. METHADONE [Interacting]
     Active Substance: METHADONE HYDROCHLORIDE
     Indication: Drug use disorder
     Dosage: 60 MILLIGRAM, QD (1 EVERY 24 HOURS)
     Route: 065
  46. METHADONE [Interacting]
     Active Substance: METHADONE HYDROCHLORIDE
     Dosage: 75 MILLIGRAM, QD (1 EVERY 1 DAYS)
     Route: 048
  47. METHADONE [Interacting]
     Active Substance: METHADONE HYDROCHLORIDE
     Dosage: 40 MILLIGRAM, QD (1 EVERY 24 HOURS)
     Route: 065
  48. METHADONE [Interacting]
     Active Substance: METHADONE HYDROCHLORIDE
     Dosage: 50 MILLIGRAM, QD (1 EVERY 24 HOURS)
     Route: 065
  49. METHADONE [Interacting]
     Active Substance: METHADONE HYDROCHLORIDE
     Dosage: 60 MILLIGRAM, QD (1 EVERY 1 DAY)
     Route: 048
  50. METHADONE [Interacting]
     Active Substance: METHADONE HYDROCHLORIDE
     Dosage: 30 MILLIGRAM, QD (1 EVERY 24 HOURS)
     Route: 065
  51. QUETIAPINE FUMARATE [Interacting]
     Active Substance: QUETIAPINE FUMARATE
     Indication: Major depression
     Dosage: UNK
     Route: 065
  52. QUETIAPINE FUMARATE [Interacting]
     Active Substance: QUETIAPINE FUMARATE
     Indication: Affective disorder
     Dosage: UNK
     Route: 048
  53. QUETIAPINE FUMARATE [Interacting]
     Active Substance: QUETIAPINE FUMARATE
     Dosage: 100 MILLIGRAM
     Route: 048
  54. QUETIAPINE FUMARATE [Interacting]
     Active Substance: QUETIAPINE FUMARATE
     Dosage: 100 MILLIGRAM, QD (1 EVERY 1 DAYS)
     Route: 048
  55. QUETIAPINE FUMARATE [Interacting]
     Active Substance: QUETIAPINE FUMARATE
     Dosage: 50 MILLIGRAM, QID
     Route: 048
  56. QUETIAPINE FUMARATE [Interacting]
     Active Substance: QUETIAPINE FUMARATE
     Dosage: UNK (4 EVERY 1 DAYS)
     Route: 065
  57. RISPERDAL [Interacting]
     Active Substance: RISPERIDONE
     Indication: Affective disorder
     Dosage: 1 MILLIGRAM, QD
     Route: 048
  58. RISPERIDONE [Interacting]
     Active Substance: RISPERIDONE
     Indication: Affective disorder
     Dosage: 1 MILLIGRAM, QD (1 EVERY 24 HOURS)
     Route: 048
  59. RISPERIDONE [Interacting]
     Active Substance: RISPERIDONE
     Dosage: 0.25 MILLIGRAM, QD
     Route: 048
  60. DOXEPIN HYDROCHLORIDE [Interacting]
     Active Substance: DOXEPIN HYDROCHLORIDE
     Indication: Major depression
     Dosage: 100 MILLIGRAM, QD (1 EVERY 24 HOURS)
     Route: 048
  61. DOXEPIN HYDROCHLORIDE [Interacting]
     Active Substance: DOXEPIN HYDROCHLORIDE
     Indication: Product used for unknown indication
     Dosage: 150 MILLIGRAM, QD (1 EVERY 1 DAYS)
     Route: 048
  62. DOXEPIN HYDROCHLORIDE [Interacting]
     Active Substance: DOXEPIN HYDROCHLORIDE
     Dosage: 150 MILLIGRAM
     Route: 065
  63. DOXEPIN HYDROCHLORIDE [Interacting]
     Active Substance: DOXEPIN HYDROCHLORIDE
     Dosage: 50 MILLIGRAM, QD (1 EVERY 1 DAY)
     Route: 048
  64. DOXEPIN HYDROCHLORIDE [Interacting]
     Active Substance: DOXEPIN HYDROCHLORIDE
     Dosage: UNK
     Route: 048
  65. DOXEPIN HYDROCHLORIDE [Interacting]
     Active Substance: DOXEPIN HYDROCHLORIDE
     Dosage: 150 MILLIGRAM, QD
     Route: 065
  66. DOXEPIN HYDROCHLORIDE [Interacting]
     Active Substance: DOXEPIN HYDROCHLORIDE
     Dosage: 150 MILLIGRAM
     Route: 048
  67. DOXEPIN HYDROCHLORIDE [Interacting]
     Active Substance: DOXEPIN HYDROCHLORIDE
     Dosage: 100 MILLIGRAM
     Route: 065
  68. SPIRIVA [Concomitant]
     Active Substance: TIOTROPIUM BROMIDE MONOHYDRATE
     Dosage: 5 MILLIGRAM
     Route: 065
  69. TIOTROPIUM BROMIDE [Concomitant]
     Active Substance: TIOTROPIUM BROMIDE
     Indication: Chronic obstructive pulmonary disease
     Dosage: 5 MILLIGRAM
     Route: 055
  70. TIOTROPIUM BROMIDE [Concomitant]
     Active Substance: TIOTROPIUM BROMIDE
     Dosage: 5 MILLIGRAM, QD
     Route: 065
  71. TIOTROPIUM BROMIDE [Concomitant]
     Active Substance: TIOTROPIUM BROMIDE
     Dosage: 5 MICROGRAM, QD (1 EVERY 24 HOURS)
     Route: 065
  72. NALOXONE [Concomitant]
     Active Substance: NALOXONE
     Indication: Pain
     Dosage: UNK
     Route: 065
  73. NALOXONE [Concomitant]
     Active Substance: NALOXONE
     Dosage: 500 MILLIGRAM, BID
     Route: 048
  74. NALOXONE [Concomitant]
     Active Substance: NALOXONE
     Dosage: 500 MILLIGRAM
     Route: 048
  75. ESTRADIOL [Concomitant]
     Active Substance: ESTRADIOL
     Indication: Endometriosis
     Dosage: 0.5 MILLIGRAM, QD (1 EVERY 1 DAYS)
     Route: 048
  76. FUROSEMIDE [Concomitant]
     Active Substance: FUROSEMIDE
     Indication: Oedema peripheral
     Dosage: UNK
     Route: 065
  77. FUROSEMIDE [Concomitant]
     Active Substance: FUROSEMIDE
     Dosage: 40 MILLIGRAM, QD
     Route: 048
  78. FUROSEMIDE [Concomitant]
     Active Substance: FUROSEMIDE
     Dosage: 40 MILLIGRAM
     Route: 048
  79. ALBUTEROL [Concomitant]
     Active Substance: ALBUTEROL
     Indication: Chronic obstructive pulmonary disease
     Dosage: 200 MICROGRAM
     Route: 065
  80. ALBUTEROL [Concomitant]
     Active Substance: ALBUTEROL
     Dosage: 200 MICROGRAM
     Route: 055
  81. ALBUTEROL [Concomitant]
     Active Substance: ALBUTEROL
     Dosage: 200 MICROGRAM, BID (2 EVERY 1 DAYS)
     Route: 065
  82. ATENOLOL [Concomitant]
     Active Substance: ATENOLOL
     Indication: Hypertension
     Dosage: 50 MILLIGRAM, QD (1 EVERY 24 HOURS)
     Route: 048
  83. ATENOLOL [Concomitant]
     Active Substance: ATENOLOL
     Dosage: UNK
     Route: 048
  84. ATENOLOL [Concomitant]
     Active Substance: ATENOLOL
     Dosage: UNK
     Route: 065
  85. CLONIDINE [Concomitant]
     Active Substance: CLONIDINE
     Indication: Drug withdrawal syndrome
     Dosage: UNK
     Route: 065
  86. CLONIDINE [Concomitant]
     Active Substance: CLONIDINE
     Dosage: 0.1 MILLIGRAM
     Route: 065
  87. NAPROXEN [Concomitant]
     Active Substance: NAPROXEN
     Indication: Scoliosis
     Dosage: 500 MILLIGRAM, BID ( 2 EVERY 1 DAYS)
     Route: 048
  88. NAPROXEN [Concomitant]
     Active Substance: NAPROXEN
     Indication: Pain

REACTIONS (7)
  - Depressed level of consciousness [Recovering/Resolving]
  - Respiratory depression [Recovering/Resolving]
  - Toxicity to various agents [Recovering/Resolving]
  - Mania [Recovering/Resolving]
  - Multiple drug therapy [Recovering/Resolving]
  - Off label use [Recovering/Resolving]
  - Drug interaction [Recovering/Resolving]
